FAERS Safety Report 8200526-9 (Version None)
Quarter: 2012Q1

REPORT INFORMATION
  Report Type: 
  Country: None (occurrence: None)
  Receive Date: 20120306
  Receipt Date: 20120221
  Transmission Date: 20120608
  Serious: Yes (Hospitalization)
  Sender: FDA-Public Use
  Company Number: MYCO20120001

PATIENT
  Age: 22 Year
  Sex: Female

DRUGS (3)
  1. TACROLIMUS [Suspect]
     Indication: RENAL TRANSPLANT
  2. MYCOPHENOLATE MOFETIL [Suspect]
     Indication: RENAL TRANSPLANT
  3. PREDNISONE TAB [Suspect]
     Indication: RENAL TRANSPLANT

REACTIONS (3)
  - MENINGITIS CRYPTOCOCCAL [None]
  - IMMUNE RECONSTITUTION SYNDROME [None]
  - KIDNEY TRANSPLANT REJECTION [None]
